FAERS Safety Report 5488844-9 (Version None)
Quarter: 2007Q4

REPORT INFORMATION
  Report Type: 
  Country: None (occurrence: None)
  Receive Date: 20071016
  Receipt Date: 20070801
  Transmission Date: 20080405
  Serious: Yes (Hospitalization)
  Sender: FDA-Public Use
  Company Number: 8027458

PATIENT
  Sex: Male
  Weight: 41.1 kg

DRUGS (2)
  1. EQUASYM [Suspect]
     Dosage: 20 MG /D
     Dates: start: 20070105, end: 20070111
  2. EQUASYM [Suspect]
     Dosage: 30 MG /D
     Dates: start: 20070112

REACTIONS (2)
  - EATING DISORDER [None]
  - POOR QUALITY SLEEP [None]
